FAERS Safety Report 19293085 (Version 1)
Quarter: 2021Q2

REPORT INFORMATION
  Report Type: Spontaneous
  Country: US (occurrence: US)
  Receive Date: 20210522
  Receipt Date: 20210522
  Transmission Date: 20210717
  Serious: Yes (Life-Threatening, Disabling, Other)
  Sender: FDA-Public Use
  Company Number: None

PATIENT
  Sex: Male

DRUGS (1)
  1. ATENOLOL 50 MG AUROBINDO [Suspect]
     Active Substance: ATENOLOL
     Indication: BLOOD PRESSURE MANAGEMENT
     Dosage: ?          QUANTITY:1 TABLET(S);?
     Route: 048
     Dates: start: 20210101, end: 20210522

REACTIONS (3)
  - Drug ineffective [None]
  - Blood pressure abnormal [None]
  - Product substitution issue [None]

NARRATIVE: CASE EVENT DATE: 20210101
